FAERS Safety Report 6541289-2 (Version None)
Quarter: 2010Q1

REPORT INFORMATION
  Report Type: 
  Country: None (occurrence: None)
  Receive Date: 20100118
  Receipt Date: 20100106
  Transmission Date: 20100710
  Serious: No
  Sender: FDA-Public Use
  Company Number: US-B.I. PHARMACEUTICALS,INC./RIDGEFIELD-2010-BP-00331BP

PATIENT
  Sex: Female

DRUGS (4)
  1. ZANTAC 75 [Suspect]
     Indication: GASTROOESOPHAGEAL REFLUX DISEASE
     Dosage: 150 MG
     Route: 048
     Dates: start: 20080101, end: 20091101
  2. VITAMINS [Concomitant]
     Indication: PROPHYLAXIS
  3. CLARINEX [Concomitant]
     Indication: MULTIPLE ALLERGIES
  4. ACYCLOVIR [Concomitant]
     Indication: SPLENECTOMY

REACTIONS (1)
  - FLATULENCE [None]
